FAERS Safety Report 22110266 (Version 1)
Quarter: 2023Q1

REPORT INFORMATION
  Report Type: Spontaneous
  Country: US (occurrence: US)
  Receive Date: 20230317
  Receipt Date: 20230317
  Transmission Date: 20230417
  Serious: No
  Sender: FDA-Public Use
  Company Number: US-BAYER-2023A033323

PATIENT
  Age: 3 Year
  Sex: Female

DRUGS (1)
  1. MIRALAX [Suspect]
     Active Substance: POLYETHYLENE GLYCOL 3350
     Indication: Constipation prophylaxis
     Dosage: UNK UNK, QD
     Dates: start: 202302

REACTIONS (4)
  - Anger [None]
  - Mood swings [None]
  - Psychotic behaviour [None]
  - Off label use [None]

NARRATIVE: CASE EVENT DATE: 20230201
